FAERS Safety Report 5253928-7 (Version None)
Quarter: 2007Q1

REPORT INFORMATION
  Report Type: 
  Country: None (occurrence: None)
  Receive Date: 20070228
  Receipt Date: 20070228
  Transmission Date: 20070707
  Serious: Yes (Other)
  Sender: FDA-Public Use
  Company Number: None

PATIENT
  Age: 25 Year
  Sex: Female
  Weight: 52.1637 kg

DRUGS (1)
  1. BENZONATATE [Suspect]
     Indication: LOWER RESPIRATORY TRACT INFECTION
     Dosage: PO
     Route: 048
     Dates: start: 20060601

REACTIONS (6)
  - ALCOHOL USE [None]
  - DISCOMFORT [None]
  - ECONOMIC PROBLEM [None]
  - RASH ERYTHEMATOUS [None]
  - RASH PRURITIC [None]
  - SKIN INFLAMMATION [None]
